FAERS Safety Report 8136506-1 (Version None)
Quarter: 2012Q1

REPORT INFORMATION
  Report Type: 
  Country: None (occurrence: None)
  Receive Date: 20120209
  Receipt Date: 20120201
  Transmission Date: 20120608
  Serious: Yes (Life-Threatening, Hospitalization)
  Sender: FDA-Public Use
  Company Number: CN-1187214

PATIENT
  Age: 65 Year
  Sex: Male

DRUGS (1)
  1. FLUORESCITE [Suspect]
     Indication: ANGIOGRAM RETINA
     Dosage: (5 ML INTRAVENOUS BOLUS)
     Route: 040
     Dates: start: 20110713, end: 20110713

REACTIONS (7)
  - STUPOR [None]
  - RESPIRATORY ARREST [None]
  - CARDIAC ARREST [None]
  - NAUSEA [None]
  - APPARENT LIFE THREATENING EVENT [None]
  - ANAPHYLACTIC SHOCK [None]
  - ABDOMINAL PAIN UPPER [None]
